FAERS Safety Report 6000511-1 (Version None)
Quarter: 2008Q4

REPORT INFORMATION
  Report Type: 
  Country: None (occurrence: None)
  Receive Date: 20081215
  Receipt Date: 20080423
  Transmission Date: 20090506
  Serious: No
  Sender: FDA-Public Use
  Company Number: US-BAYER-200811931BCC

PATIENT
  Age: 60 Year
  Sex: Female
  Weight: 53 kg

DRUGS (4)
  1. ALEVE [Suspect]
     Indication: MUSCULOSKELETAL PAIN
     Dosage: TOTAL DAILY DOSE: 220 MG  UNIT DOSE: 220 MG
     Dates: start: 20071001, end: 20080423
  2. ONE-A-DAY WOMEN'S [Suspect]
     Dates: start: 19980101, end: 20080423
  3. ZOLOFT [Concomitant]
     Indication: DEPRESSION
  4. NASONEX [Concomitant]
     Indication: SEASONAL ALLERGY

REACTIONS (1)
  - ABDOMINAL DISCOMFORT [None]
